FAERS Safety Report 19278007 (Version 1)
Quarter: 2021Q2

REPORT INFORMATION
  Report Type: Spontaneous
  Country: US (occurrence: US)
  Receive Date: 20210520
  Receipt Date: 20210520
  Transmission Date: 20210717
  Serious: No
  Sender: FDA-Public Use
  Company Number: US-EMD SERONO-9236293

PATIENT
  Age: 44 Year
  Sex: Female

DRUGS (5)
  1. ZYRTEC [Concomitant]
     Active Substance: CETIRIZINE HYDROCHLORIDE
  2. REBIF [Suspect]
     Active Substance: INTERFERON BETA-1A
  3. REBIF [Suspect]
     Active Substance: INTERFERON BETA-1A
     Indication: MULTIPLE SCLEROSIS
     Route: 058
     Dates: start: 202011
  4. MIRENA [Concomitant]
     Active Substance: LEVONORGESTREL
     Indication: MENSTRUATION IRREGULAR
  5. REBIF [Suspect]
     Active Substance: INTERFERON BETA-1A
     Dates: end: 202012

REACTIONS (9)
  - Malaise [Recovering/Resolving]
  - Panic disorder [Unknown]
  - Fatigue [Recovering/Resolving]
  - Asthenia [Recovering/Resolving]
  - Speech disorder [Unknown]
  - Multiple sclerosis relapse [Unknown]
  - Memory impairment [Unknown]
  - Nausea [Recovering/Resolving]
  - Mobility decreased [Unknown]

NARRATIVE: CASE EVENT DATE: 202011
